FAERS Safety Report 5443591-4 (Version None)
Quarter: 2007Q3

REPORT INFORMATION
  Report Type: 
  Country: None (occurrence: None)
  Receive Date: 20070905
  Receipt Date: 20070829
  Transmission Date: 20080115
  Serious: Yes (Life-Threatening)
  Sender: FDA-Public Use
  Company Number: JP-ASTRAZENECA-2007SE04692

PATIENT
  Age: 57 Year
  Sex: Male

DRUGS (4)
  1. CANDESARTAN CILEXETIL [Suspect]
     Indication: HYPERTENSION
     Route: 048
     Dates: start: 20070301, end: 20070827
  2. NORVASC [Concomitant]
     Route: 048
     Dates: end: 20070827
  3. CARBADOGEN [Concomitant]
     Route: 048
     Dates: end: 20070827
  4. NITRODERM [Concomitant]
     Route: 062
     Dates: end: 20070827

REACTIONS (3)
  - HYPERKALAEMIA [None]
  - HYPOGLYCAEMIA [None]
  - HYPONATRAEMIA [None]
